FAERS Safety Report 24546170 (Version 1)
Quarter: 2024Q4

REPORT INFORMATION
  Report Type: Spontaneous
  Country: ES (occurrence: ES)
  Receive Date: 20241024
  Receipt Date: 20241024
  Transmission Date: 20250114
  Serious: Yes (Hospitalization)
  Sender: MYLAN
  Company Number: None

PATIENT
  Age: 75 Year
  Sex: Male

DRUGS (12)
  1. FENTANYL [Suspect]
     Active Substance: FENTANYL
     Indication: Back pain
     Dosage: 37 MILLIGRAM, Q3D (37 MG EVERY 72 HOURS)
     Route: 062
     Dates: start: 20230918, end: 20230921
  2. TRELEGY ELLIPTA [Concomitant]
     Active Substance: FLUTICASONE FUROATE\UMECLIDINIUM BROMIDE\VILANTEROL TRIFENATATE
     Indication: Bronchitis chronic
     Dosage: QD (1 PUFF EVERY 24 H)
     Route: 065
     Dates: start: 20230124
  3. Dutasteride/tamsulosin mylan [Concomitant]
     Indication: Benign prostatic hyperplasia
     Dosage: 1 DOSAGE FORM, QD (1 CAPSULE BREAKFAST)
     Route: 048
     Dates: start: 20211104
  4. PARACETAMOL KERN PHARMA [Concomitant]
     Indication: Back pain
     Dosage: 1 GRAM, TID (1 G BREAKFAST, LUNCH, DINNER)
     Route: 048
     Dates: start: 20230408
  5. ACIDO ACETILSALICILICO MYLAN [Concomitant]
     Indication: Aortic valve disease
     Dosage: 100 MILLIGRAM, QD (100 MG BREAKFAST)
     Route: 048
     Dates: start: 20100911
  6. SYNJARDY [Concomitant]
     Active Substance: EMPAGLIFLOZIN\METFORMIN HYDROCHLORIDE
     Indication: Type 2 diabetes mellitus
     Dosage: 1 DOSAGE FORM, BID (1 TABLET EVERY 12 H)
     Route: 048
     Dates: start: 20230302
  7. CARVEDILOL CINFA [Concomitant]
     Indication: Endocarditis rheumatic
     Dosage: 12.5 MILLIGRAM, BID (12.5 MG BEFORE BREAKFAST, DINNER)
     Route: 048
     Dates: start: 20100305
  8. Omeprazol viatris [Concomitant]
     Indication: Back pain
     Dosage: 20 MILLIGRAM, QD (20 MG BEFORE BREAKFAST)
     Route: 048
     Dates: start: 20100305
  9. ALBUTEROL SULFATE\IPRATROPIUM BROMIDE [Concomitant]
     Active Substance: ALBUTEROL SULFATE\IPRATROPIUM BROMIDE
     Indication: Bronchitis chronic
     Dosage: 1 DOSAGE FORM, Q8H (1 AMPOULE EVERY 8 HOURS)
     Route: 065
     Dates: start: 20230918
  10. TERBUTALINE SULFATE [Concomitant]
     Active Substance: TERBUTALINE SULFATE
     Indication: Bronchitis chronic
     Dosage: 500 MICROGRAM, Q6H (500 MCG EVERY 6 HOURS)
     Route: 065
     Dates: start: 20230518
  11. QUETIAPINE FUMARATE [Concomitant]
     Active Substance: QUETIAPINE FUMARATE
     Indication: Dementia Alzheimer^s type
     Dosage: 25 MILLIGRAM, QD (25 MG DINNER)
     Route: 048
     Dates: start: 20230918
  12. FUROSEMIDE [Concomitant]
     Active Substance: FUROSEMIDE
     Indication: Product used for unknown indication
     Dosage: 80 MILLIGRAM, QD (80 MG EVERY 24 H)
     Route: 048
     Dates: start: 20190629

REACTIONS (2)
  - Respiratory failure [Recovered/Resolved]
  - Somnolence [Recovered/Resolved]

NARRATIVE: CASE EVENT DATE: 20230920
